FAERS Safety Report 5500730-4 (Version None)
Quarter: 2007Q4

REPORT INFORMATION
  Report Type: 
  Country: None (occurrence: None)
  Receive Date: 20071029
  Receipt Date: 20071019
  Transmission Date: 20080405
  Serious: Yes (Disabling)
  Sender: FDA-Public Use
  Company Number: IE-ASTRAZENECA-2007GB00869

PATIENT
  Age: 23707 Day
  Sex: Male
  Weight: 93.2 kg

DRUGS (1)
  1. CRESTOR [Suspect]
     Indication: BLOOD CHOLESTEROL INCREASED
     Route: 048
     Dates: start: 20061109, end: 20070314

REACTIONS (1)
  - TENDON DISORDER [None]
